FAERS Safety Report 5265528-3 (Version None)
Quarter: 2007Q1

REPORT INFORMATION
  Report Type: 
  Country: None (occurrence: None)
  Receive Date: 20061213
  Receipt Date: 20040429
  Transmission Date: 20070707
  Serious: Yes (Other)
  Sender: FDA-Public Use
  Company Number: 2003UW16107

PATIENT
  Age: 66 Year
  Sex: Female
  Weight: 66.2252 kg

DRUGS (15)
  1. IRESSA [Suspect]
     Indication: LUNG NEOPLASM MALIGNANT
     Dosage: 250 MG QD PO
     Route: 048
     Dates: start: 20030811, end: 20031201
  2. TOPROL-XL [Concomitant]
  3. HYZAAR [Concomitant]
  4. GLUCOPHAGE [Concomitant]
  5. TRICOR [Concomitant]
  6. PRILOSEC [Concomitant]
  7. ASPIRIN [Concomitant]
  8. CLARINEX [Concomitant]
  9. SINGULAIR ^DIECKMANN^ [Concomitant]
  10. VITAMIN CAP [Concomitant]
  11. VITAMIN E [Concomitant]
  12. ASCORBIC ACID [Concomitant]
  13. COENZYME Q10 [Concomitant]
  14. VITAMIN B-12 [Concomitant]
  15. OSCAL [Concomitant]

REACTIONS (3)
  - ALOPECIA [None]
  - DIARRHOEA [None]
  - DRY SKIN [None]
